FAERS Safety Report 6150124-6 (Version None)
Quarter: 2009Q2

REPORT INFORMATION
  Report Type: 
  Country: None (occurrence: None)
  Receive Date: 20090407
  Receipt Date: 20090407
  Transmission Date: 20091009
  Serious: Yes (Hospitalization)
  Sender: FDA-Public Use
  Company Number: None

PATIENT
  Age: 39 Year
  Sex: Female

DRUGS (1)
  1. PROVENTIL-HFA [Suspect]
     Indication: ASTHMA
     Dosage: 2 PUFFS Q4H PRN ORAL
     Route: 048
     Dates: start: 20080901, end: 20081201

REACTIONS (2)
  - BLOOD IMMUNOGLOBULIN E INCREASED [None]
  - FOOD ALLERGY [None]
